FAERS Safety Report 6969163-8 (Version None)
Quarter: 2010Q3

REPORT INFORMATION
  Report Type: 
  Country: None (occurrence: None)
  Receive Date: 20100907
  Receipt Date: 20100825
  Transmission Date: 20110219
  Serious: Yes (Other)
  Sender: FDA-Public Use
  Company Number: PHHY2010SI56941

PATIENT
  Age: 63 Year
  Sex: Female

DRUGS (3)
  1. ZOLEDRONIC [Suspect]
     Indication: OSTEOPOROSIS
     Dosage: 5 MG/ YEAR
  2. ZOLEDRONIC [Suspect]
     Dosage: 5 MG/ YEAR
  3. ZOLEDRONIC [Suspect]
     Dosage: 5 MG/ YEAR

REACTIONS (2)
  - BLOOD CREATININE INCREASED [None]
  - CREATININE RENAL CLEARANCE DECREASED [None]
